FAERS Safety Report 6206297-X (Version None)
Quarter: 2009Q2

REPORT INFORMATION
  Report Type: 
  Country: None (occurrence: None)
  Receive Date: 20090528
  Receipt Date: 20090519
  Transmission Date: 20091009
  Serious: Yes (Other)
  Sender: FDA-Public Use
  Company Number: US-ROCHE-634619

PATIENT
  Sex: Male

DRUGS (1)
  1. KLONOPIN [Suspect]
     Route: 065

REACTIONS (1)
  - ROAD TRAFFIC ACCIDENT [None]
